FAERS Safety Report 12299315 (Version 1)
Quarter: 2016Q2

REPORT INFORMATION
  Report Type: Spontaneous
  Country: JP (occurrence: JP)
  Receive Date: 20160425
  Receipt Date: 20160425
  Transmission Date: 20160815
  Serious: Yes (Other)
  Sender: FDA-Public Use
  Company Number: JP-ACCORD-039686

PATIENT
  Sex: Female

DRUGS (4)
  1. IRINOTECAN/IRINOTECAN HYDROCHLORIDE [Concomitant]
     Active Substance: IRINOTECAN HYDROCHLORIDE
     Indication: OVARIAN CANCER
     Dates: start: 200607
  2. CISPLATIN. [Concomitant]
     Active Substance: CISPLATIN
     Indication: OVARIAN CANCER
     Dosage: 30MG/BODY
     Dates: start: 200704, end: 200705
  3. CARBOPLATIN. [Suspect]
     Active Substance: CARBOPLATIN
     Indication: OVARIAN CANCER
     Dosage: 200 MG/BODY, ?DOSES WERE GRADUALLY INCREASED AFTER THREE COURSES
     Dates: start: 200502
  4. PACLITAXEL/PACLITAXEL LIPOSOME [Suspect]
     Active Substance: PACLITAXEL
     Indication: OVARIAN CANCER
     Dosage: 135-155 MG/?150-168 MG/BODY?150 MG/BODY (135 MG/M2 X 75%)
     Dates: start: 200502, end: 200601

REACTIONS (5)
  - Cerebral infarction [None]
  - Ovarian cancer recurrent [None]
  - Tumour embolism [None]
  - Myelodysplastic syndrome [Unknown]
  - Acute myeloid leukaemia [Unknown]
